FAERS Safety Report 6678785-3 (Version None)
Quarter: 2010Q2

REPORT INFORMATION
  Report Type: 
  Country: None (occurrence: None)
  Receive Date: 20100413
  Receipt Date: 20100329
  Transmission Date: 20101027
  Serious: Yes (Death, Disabling)
  Sender: FDA-Public Use
  Company Number: JP-MPIJNJ-2010-00687

PATIENT

DRUGS (7)
  1. VELCADE [Suspect]
     Indication: MULTIPLE MYELOMA
     Dosage: 1.3 MG, UNK
     Route: 042
     Dates: start: 20091130, end: 20091210
  2. TAKEPRON [Concomitant]
     Dosage: 15 MG, UNK
  3. VALTREX [Concomitant]
     Indication: PROPHYLAXIS
     Dosage: 1 G, UNK
     Route: 048
     Dates: start: 20091130
  4. COTRIM [Concomitant]
     Indication: PROPHYLAXIS
     Dosage: 1 DF, UNK
     Route: 048
     Dates: start: 20091104
  5. ITRIZOLE [Concomitant]
     Indication: PROPHYLAXIS
     Dosage: 200 MG, UNK
     Route: 042
     Dates: start: 20091104
  6. ZYLORIC                            /00003301/ [Concomitant]
     Dosage: 100 MG, UNK
     Route: 048
     Dates: start: 20091104
  7. DECADRON [Concomitant]
     Indication: MULTIPLE MYELOMA
     Dosage: 20 MG, UNK
     Dates: start: 20091130

REACTIONS (5)
  - CARDIAC FAILURE [None]
  - DISEASE PROGRESSION [None]
  - NEUROPATHY PERIPHERAL [None]
  - PANCYTOPENIA [None]
  - PLEURAL EFFUSION [None]
